FAERS Safety Report 5528290-2 (Version None)
Quarter: 2007Q4

REPORT INFORMATION
  Report Type: 
  Country: None (occurrence: None)
  Receive Date: 20071121
  Receipt Date: 20071105
  Transmission Date: 20080405
  Serious: Yes (Life-Threatening, Hospitalization)
  Sender: FDA-Public Use
  Company Number: 2007EU002456

PATIENT
  Age: 49 Year
  Sex: Female

DRUGS (4)
  1. PROGRAF [Suspect]
     Indication: LIVER TRANSPLANT
     Dosage: 3 MG, UID/QD, ORAL
     Route: 048
     Dates: start: 20070723, end: 20070829
  2. ROVALCYTE(VALGANCICLOVIR) [Suspect]
     Indication: LIVER TRANSPLANT
     Dosage: 450 MG, UID/QD, ORAL
     Route: 048
     Dates: start: 20070723, end: 20070824
  3. PANTOPRAZOLE SODIUM [Concomitant]
  4. DELURSAN (URSODEOXYCHOLIC ACID) [Concomitant]

REACTIONS (9)
  - BLOOD CREATINE DECREASED [None]
  - BLOOD IMMUNOGLOBULIN G INCREASED [None]
  - BONE MARROW FAILURE [None]
  - GENERALISED ERYTHEMA [None]
  - MUCOSAL INFLAMMATION [None]
  - PANCYTOPENIA [None]
  - PURPURA [None]
  - PYREXIA [None]
  - THROMBOCYTOPENIA [None]
